FAERS Safety Report 5511579-0 (Version None)
Quarter: 2007Q4

REPORT INFORMATION
  Report Type: 
  Country: None (occurrence: None)
  Receive Date: 20071109
  Receipt Date: 20071107
  Transmission Date: 20080405
  Serious: Yes (Life-Threatening, Hospitalization)
  Sender: FDA-Public Use
  Company Number: US-SANOFI-SYNTHELABO-F01200701437

PATIENT

DRUGS (3)
  1. LEUCOVORIN CALCIUM [Suspect]
     Dosage: 400 MG/M2 GIVEN AS BOLUS FOLLOWED BY 2400 MG/M2 CONTINUOUSLY OVER 46 HOURS EVERY TWO WEEKS
     Route: 042
     Dates: start: 20070928, end: 20070928
  2. BEVACIZUMAB [Suspect]
     Route: 042
     Dates: start: 20070928, end: 20070928
  3. ELOXATIN [Suspect]
     Indication: COLON CANCER
     Route: 042
     Dates: start: 20070928, end: 20070928

REACTIONS (1)
  - ATRIAL FIBRILLATION [None]
